FAERS Safety Report 15331189 (Version 2)
Quarter: 2018Q4

REPORT INFORMATION
  Report Type: Report from Study
  Country: CA (occurrence: CA)
  Receive Date: 20180829
  Receipt Date: 20181008
  Transmission Date: 20190204
  Serious: Yes (Other)
  Sender: FDA-Public Use
  Company Number: CA-BRISTOL-MYERS SQUIBB COMPANY-BMS-2018-070738

PATIENT
  Age: 67 Year
  Sex: Female

DRUGS (1)
  1. ABATACEPT [Suspect]
     Active Substance: ABATACEPT
     Indication: PRODUCT USED FOR UNKNOWN INDICATION
     Dosage: 125 MG, QWK
     Route: 058
     Dates: start: 20180709

REACTIONS (24)
  - Constipation [Unknown]
  - Peripheral swelling [Unknown]
  - Abdominal pain [Recovering/Resolving]
  - Hyperkeratosis [Unknown]
  - Arthralgia [Unknown]
  - Pain [Unknown]
  - Incontinence [Not Recovered/Not Resolved]
  - Gait disturbance [Unknown]
  - Urinary tract infection [Unknown]
  - Vomiting [Recovered/Resolved]
  - Fatigue [Unknown]
  - Osteoarthritis [Unknown]
  - Diarrhoea [Unknown]
  - Nausea [Recovering/Resolving]
  - Pain in extremity [Unknown]
  - Oedema peripheral [Unknown]
  - Burning sensation [Unknown]
  - Limb discomfort [Unknown]
  - Inflammation [Unknown]
  - Hypoaesthesia [Recovered/Resolved]
  - Headache [Recovering/Resolving]
  - Renal pain [Unknown]
  - Musculoskeletal stiffness [Unknown]
  - Insomnia [Unknown]

NARRATIVE: CASE EVENT DATE: 20180720
